FAERS Safety Report 8230356-3 (Version None)
Quarter: 2012Q1

REPORT INFORMATION
  Report Type: 
  Country: None (occurrence: None)
  Receive Date: 20120323
  Receipt Date: 20120313
  Transmission Date: 20120608
  Serious: Yes (Other)
  Sender: FDA-Public Use
  Company Number: US-JNJFOC-20120307599

PATIENT
  Sex: Male
  Weight: 86.18 kg

DRUGS (1)
  1. RISPERDAL [Suspect]
     Indication: SCHIZOPHRENIA
     Route: 048

REACTIONS (9)
  - BRAIN CONTUSION [None]
  - ABDOMINAL DISTENSION [None]
  - SCHIZOPHRENIA [None]
  - HYPOTENSION [None]
  - SYNCOPE [None]
  - WEIGHT INCREASED [None]
  - HYPERTENSION [None]
  - DIABETES MELLITUS [None]
  - CONVULSION [None]
